FAERS Safety Report 5284270-6 (Version None)
Quarter: 2007Q1

REPORT INFORMATION
  Report Type: 
  Country: None (occurrence: None)
  Receive Date: 20061227
  Receipt Date: 20060905
  Transmission Date: 20070707
  Serious: Yes (Other)
  Sender: FDA-Public Use
  Company Number: A03200605544

PATIENT
  Sex: Male

DRUGS (1)
  1. AMBIEN CR - ZOLPIDEM TARTRATE - TABLET - UNIT DOSE : UNKNOWN [Suspect]
     Dosage: ORAL
     Route: 048

REACTIONS (5)
  - ABDOMINAL PAIN UPPER [None]
  - CONTUSION [None]
  - EATING DISORDER [None]
  - HALLUCINATION [None]
  - SLEEP WALKING [None]
